FAERS Safety Report 25084635 (Version 1)
Quarter: 2025Q1

REPORT INFORMATION
  Report Type: Other
  Country: AU (occurrence: AU)
  Receive Date: 20250317
  Receipt Date: 20250317
  Transmission Date: 20250409
  Serious: Yes (Other)
  Sender: LUPIN
  Company Number: AU-LUPIN PHARMA CANADA-2025-02148

PATIENT
  Age: 72 Year
  Sex: Male

DRUGS (1)
  1. CEPHALEXIN [Suspect]
     Active Substance: CEPHALEXIN
     Indication: Product used for unknown indication
     Route: 065

REACTIONS (2)
  - Generalised pustular psoriasis [Unknown]
  - Off label use [Unknown]
